FAERS Safety Report 4475376-X (Version None)
Quarter: 2004Q4

REPORT INFORMATION
  Report Type: 
  Country: None (occurrence: None)
  Receive Date: 20041014
  Receipt Date: 20041014
  Transmission Date: 20050328
  Serious: Yes (Other)
  Sender: FDA-Public Use
  Company Number: None

PATIENT

DRUGS (2)
  1. GLADASE 30 (PAPAIN: UREA) [Suspect]
     Dates: start: 20040410
  2. GLADASE 30 (PAPAIN: UREA) [Suspect]
     Dates: start: 20040412

REACTIONS (3)
  - APPLICATION SITE DERMATITIS [None]
  - APPLICATION SITE VESICLES [None]
  - MEDICATION ERROR [None]
